FAERS Safety Report 9971346 (Version 2)
Quarter: 2014Q1

REPORT INFORMATION
  Report Type: Report from Study
  Country: US (occurrence: US)
  Receive Date: 20140306
  Receipt Date: 20140306
  Transmission Date: 20141002
  Serious: No
  Sender: FDA-Public Use
  Company Number: US-ABBVIE-13P-163-1097918-00

PATIENT
  Age: 23 Year
  Sex: Female

DRUGS (11)
  1. HUMIRA [Suspect]
     Indication: CROHN^S DISEASE
     Route: 058
     Dates: start: 20130515, end: 20130515
  2. HUMIRA [Suspect]
     Route: 058
     Dates: start: 201305
  3. ASACOL [Suspect]
     Indication: PRODUCT USED FOR UNKNOWN INDICATION
  4. BENTYL [Concomitant]
     Indication: GASTRIC DISORDER
     Dosage: EVERY 4-6 HOURS AS NEEDED
  5. PRILOSEC [Concomitant]
     Indication: ILL-DEFINED DISORDER
  6. ZOLOFT [Concomitant]
     Indication: NERVOUS SYSTEM DISORDER
  7. VISTARIL [Concomitant]
     Indication: NAUSEA
  8. ZOFRAN [Concomitant]
     Indication: VOMITING
  9. AMITRIPTYLINE [Concomitant]
     Indication: INSOMNIA
  10. OTC IRON PILLS [Concomitant]
     Indication: PRODUCT USED FOR UNKNOWN INDICATION
     Dosage: DAILY
  11. APRISO [Concomitant]
     Indication: PRODUCT USED FOR UNKNOWN INDICATION

REACTIONS (4)
  - Arthritis [Not Recovered/Not Resolved]
  - Pain [Unknown]
  - Arthralgia [Unknown]
  - Diarrhoea [Unknown]
